FAERS Safety Report 16819118 (Version 6)
Quarter: 2020Q4

REPORT INFORMATION
  Report Type: Report from Study
  Country: CA (occurrence: CA)
  Receive Date: 20190917
  Receipt Date: 20201105
  Transmission Date: 20210113
  Serious: Yes (Other)
  Sender: FDA-Public Use
  Company Number: CA-JNJFOC-20190911059

PATIENT
  Age: 79 Year
  Sex: Male
  Weight: 123.3 kg

DRUGS (6)
  1. STELARA [Suspect]
     Active Substance: USTEKINUMAB
     Indication: CROHN^S DISEASE
     Route: 058
     Dates: start: 20190124
  2. STELARA [Suspect]
     Active Substance: USTEKINUMAB
     Route: 058
  3. STELARA [Suspect]
     Active Substance: USTEKINUMAB
     Route: 058
  4. STELARA [Suspect]
     Active Substance: USTEKINUMAB
     Route: 058
  5. STELARA [Suspect]
     Active Substance: USTEKINUMAB
     Route: 058
  6. STELARA [Suspect]
     Active Substance: USTEKINUMAB
     Route: 058

REACTIONS (8)
  - Lower respiratory tract infection [Recovering/Resolving]
  - Oedema peripheral [Unknown]
  - Off label use [Unknown]
  - Crohn^s disease [Not Recovered/Not Resolved]
  - Tooth fracture [Unknown]
  - Cataract [Unknown]
  - Pleural effusion [Unknown]
  - Product use issue [Unknown]

NARRATIVE: CASE EVENT DATE: 20190826
